FAERS Safety Report 10587697 (Version 2)
Quarter: 2015Q1

REPORT INFORMATION
  Report Type: Spontaneous
  Country: JP (occurrence: JP)
  Receive Date: 20141117
  Receipt Date: 20150206
  Transmission Date: 20150720
  Serious: Yes (Death)
  Sender: FDA-Public Use
  Company Number: JP-TEVA-522934ISR

PATIENT
  Sex: Male
  Weight: 49 kg

DRUGS (6)
  1. SUMILU STICK (FELBINAC) [Concomitant]
     Indication: CANCER PAIN
     Route: 062
     Dates: start: 20140606, end: 20140928
  2. E-FEN BUCCAL (FENTANYL CITRATE) [Suspect]
     Active Substance: FENTANYL CITRATE
     Indication: BREAKTHROUGH PAIN
     Dosage: 100 MICROGRAM DAILY;
     Route: 002
     Dates: start: 20140826, end: 20140826
  3. FENTOS (FENTANYL CITRATE) [Concomitant]
     Indication: CANCER PAIN
     Dosage: 1 MILLIGRAM DAILY;
     Route: 062
     Dates: start: 20140821, end: 20140826
  4. FENTOS (FENTANYL CITRATE) [Concomitant]
     Dosage: 2 MILLIGRAM DAILY;
     Route: 062
     Dates: start: 20140827, end: 20140828
  5. E-FEN BUCCAL (FENTANYL CITRATE) [Suspect]
     Active Substance: FENTANYL CITRATE
     Dosage: 50 MICROGRAM DAILY;
     Route: 002
     Dates: start: 20140903, end: 20140928
  6. MAGMITT (MAGNESIUM OXIDE) [Concomitant]
     Active Substance: MAGNESIUM OXIDE
     Dosage: 750 MILLIGRAM DAILY;
     Route: 048
     Dates: start: 20140811, end: 20140928

REACTIONS (1)
  - Concomitant disease aggravated [Fatal]
